FAERS Safety Report 18944802 (Version 4)
Quarter: 2024Q3

REPORT INFORMATION
  Report Type: Spontaneous
  Country: US (occurrence: US)
  Receive Date: 20210226
  Receipt Date: 20240807
  Transmission Date: 20241017
  Serious: Yes (Other)
  Sender: JOHNSON AND JOHNSON
  Company Number: US-JNJFOC-20210230297

PATIENT
  Age: 40 Year
  Sex: Female

DRUGS (13)
  1. ELMIRON [Suspect]
     Active Substance: PENTOSAN POLYSULFATE SODIUM
     Indication: Cystitis interstitial
     Dosage: 100 MG 4 TIMES DAILY AND 100 MG 2 PILLS TWICE A DAY
     Route: 048
     Dates: start: 200605, end: 201905
  2. ELMIRON [Suspect]
     Active Substance: PENTOSAN POLYSULFATE SODIUM
     Dosage: 100 MG 4 TIMES DAILY AND 100 MG 2 PILLS TWICE A DAY
     Route: 048
     Dates: end: 2019
  3. SYNTHROID [Concomitant]
     Active Substance: LEVOTHYROXINE SODIUM
     Indication: Hypothyroidism
     Dates: start: 1996
  4. LIOTHYRONINE [Concomitant]
     Active Substance: LIOTHYRONINE
     Indication: Thyroid disorder
     Dates: start: 2010
  5. TRAMADOL [Concomitant]
     Active Substance: TRAMADOL\TRAMADOL HYDROCHLORIDE
     Indication: Pain
     Dates: start: 2011
  6. HYDROXYZINE [Concomitant]
     Active Substance: HYDROXYZINE HYDROCHLORIDE
     Dates: start: 2011
  7. FLUOXETINE [Concomitant]
     Active Substance: FLUOXETINE HYDROCHLORIDE
     Indication: Depression
     Dates: start: 2011
  8. CARAFATE [Concomitant]
     Active Substance: SUCRALFATE
     Indication: Gastric ulcer
     Dates: start: 2012
  9. LORAZEPAM [Concomitant]
     Active Substance: LORAZEPAM
     Indication: Anxiety
     Dates: start: 2013
  10. RABEPRAZOLE [Concomitant]
     Active Substance: RABEPRAZOLE
     Indication: Gastrooesophageal reflux disease
     Dates: start: 2013
  11. CARAFATE [Concomitant]
     Active Substance: SUCRALFATE
     Indication: Ulcer
     Route: 065
     Dates: start: 2012, end: 2019
  12. MINIVELLE [Concomitant]
     Active Substance: ESTRADIOL
     Indication: Menopausal symptoms
     Route: 065
     Dates: start: 2014, end: 2017
  13. DULOXETINE [Concomitant]
     Active Substance: DULOXETINE
     Indication: Antidepressant therapy
     Route: 065
     Dates: start: 2015, end: 2018

REACTIONS (4)
  - Maculopathy [Unknown]
  - Retinopathy [Unknown]
  - Off label use [Unknown]
  - Product use issue [Unknown]

NARRATIVE: CASE EVENT DATE: 20060501
